FAERS Safety Report 8646019 (Version 3)
Quarter: 2013Q2

REPORT INFORMATION
  Report Type: Spontaneous
  Country: JP (occurrence: JP)
  Receive Date: 20120702
  Receipt Date: 20130520
  Transmission Date: 20140414
  Serious: Yes (Other)
  Sender: FDA-Public Use
  Company Number: JP-009507513-1206USA04781

PATIENT
  Age: 42 Year
  Sex: Male

DRUGS (8)
  1. SINGULAIR [Suspect]
     Indication: CHRONIC SINUSITIS
     Dosage: 10 MG, QD
     Route: 048
     Dates: start: 201105, end: 201106
  2. METHISTA [Suspect]
     Indication: CHRONIC SINUSITIS
     Dosage: UNK
     Route: 048
     Dates: start: 201105
  3. RIKAVARIN [Suspect]
     Indication: CHRONIC SINUSITIS
     Dosage: UNK
     Dates: start: 201105
  4. ALLEGRA [Suspect]
     Indication: CHRONIC SINUSITIS
     Dosage: UNK
     Route: 048
     Dates: start: 201105
  5. ALLERMIST [Suspect]
     Indication: CHRONIC SINUSITIS
     Dosage: UNK
     Route: 045
     Dates: start: 201105
  6. [THERAPY UNSPECIFIED] [Suspect]
     Indication: CHRONIC SINUSITIS
     Dosage: UNK
     Dates: start: 201105
  7. CLARITH [Concomitant]
     Indication: CHRONIC SINUSITIS
  8. AVELOX [Concomitant]
     Indication: CHRONIC SINUSITIS
     Route: 048

REACTIONS (1)
  - Drug eruption [Unknown]
